FAERS Safety Report 12116537 (Version 2)
Quarter: 2016Q1

REPORT INFORMATION
  Report Type: Report from Study
  Country: US (occurrence: US)
  Receive Date: 20160225
  Receipt Date: 20160308
  Transmission Date: 20160526
  Serious: Yes (Hospitalization)
  Sender: FDA-Public Use
  Company Number: US-ACTELION-A-US2016-131877

PATIENT
  Age: 47 Year
  Sex: Female

DRUGS (3)
  1. MACITENTAN [Suspect]
     Active Substance: MACITENTAN
     Indication: PULMONARY ARTERIAL HYPERTENSION
     Dosage: 10 MG, UNK
     Route: 048
     Dates: start: 20150902
  2. VENTAVIS [Suspect]
     Active Substance: ILOPROST
     Indication: PULMONARY ARTERIAL HYPERTENSION
     Dosage: 5 MCG, 6-9 X DAILY
     Route: 055
     Dates: start: 20150714
  3. VENTAVIS [Suspect]
     Active Substance: ILOPROST
     Dosage: 5 MCG, QID
     Route: 055

REACTIONS (9)
  - Acute kidney injury [Unknown]
  - Sepsis [Unknown]
  - Hypotension [Unknown]
  - No therapeutic response [Unknown]
  - Headache [Unknown]
  - Nausea [Unknown]
  - Fall [Unknown]
  - Transfusion [Unknown]
  - Treatment noncompliance [Unknown]

NARRATIVE: CASE EVENT DATE: 20160217
